FAERS Safety Report 5573480-6 (Version None)
Quarter: 2007Q4

REPORT INFORMATION
  Report Type: 
  Country: None (occurrence: None)
  Receive Date: 20071226
  Receipt Date: 20071218
  Transmission Date: 20080405
  Serious: Yes (Other)
  Sender: FDA-Public Use
  Company Number: US-ASTRAZENECA-2007UW14454

PATIENT
  Age: 67 Year
  Sex: Female
  Weight: 77.1 kg

DRUGS (6)
  1. ARIMIDEX [Suspect]
     Indication: BREAST CANCER
     Route: 048
     Dates: start: 20070101
  2. ACIPHEX [Concomitant]
  3. RED YEAST RICE [Concomitant]
  4. CO-ENZYME 10 [Concomitant]
  5. DIOVAN HCT [Concomitant]
  6. NAPROSYN [Concomitant]

REACTIONS (9)
  - ABDOMINAL DISCOMFORT [None]
  - ALOPECIA [None]
  - ARTHRITIS [None]
  - DYSPEPSIA [None]
  - FATIGUE [None]
  - GASTROINTESTINAL HAEMORRHAGE [None]
  - HOT FLUSH [None]
  - MUSCULOSKELETAL PAIN [None]
  - VAGINAL HAEMORRHAGE [None]
